FAERS Safety Report 10595200 (Version 1)
Quarter: 2014Q4

REPORT INFORMATION
  Report Type: Other
  Country: GB (occurrence: GB)
  Receive Date: 20141120
  Receipt Date: 20141120
  Transmission Date: 20150529
  Serious: Yes (Other)
  Sender: FDA-Public Use
  Company Number: GB-SUN PHARMACEUTICAL INDUSTRIES LTD-2014SUN02575

PATIENT

DRUGS (10)
  1. AMLODIPINE [Concomitant]
     Active Substance: AMLODIPINE BESYLATE
     Dates: start: 20140717, end: 20140911
  2. BETAMETHASONE VALERATE. [Concomitant]
     Active Substance: BETAMETHASONE VALERATE
     Dates: start: 20140818, end: 20140901
  3. CANDESARTAN [Concomitant]
     Active Substance: CANDESARTAN
     Dates: start: 20140717, end: 20140814
  4. WARFARIN SODIUM. [Concomitant]
     Active Substance: WARFARIN SODIUM
     Dates: start: 20140717, end: 20140814
  5. CARVEDILOL. [Concomitant]
     Active Substance: CARVEDILOL
     Dates: start: 20140717, end: 20140911
  6. SIMVASTATIN. [Concomitant]
     Active Substance: SIMVASTATIN
     Dates: start: 20140717, end: 20140911
  7. LEUPRORELIN [Concomitant]
     Active Substance: LEUPROLIDE ACETATE
     Dates: start: 20140508, end: 20141023
  8. SILDENAFIL. [Concomitant]
     Active Substance: SILDENAFIL
     Dates: start: 20140717, end: 20140911
  9. BICALUTAMIDE. [Suspect]
     Active Substance: BICALUTAMIDE
     Indication: PRODUCT USED FOR UNKNOWN INDICATION
     Route: 065
     Dates: start: 20140724
  10. LANSOPRAZOLE. [Concomitant]
     Active Substance: LANSOPRAZOLE
     Dates: start: 20140717, end: 20140911

REACTIONS (2)
  - Mood swings [Recovered/Resolved]
  - Aggression [Recovered/Resolved]

NARRATIVE: CASE EVENT DATE: 20140821
